FAERS Safety Report 13447717 (Version 1)
Quarter: 2017Q2

REPORT INFORMATION
  Report Type: Spontaneous
  Country: US (occurrence: US)
  Receive Date: 20170417
  Receipt Date: 20170417
  Transmission Date: 20170830
  Serious: Yes (Hospitalization)
  Sender: FDA-Public Use
  Company Number: None

PATIENT
  Age: 50 Year
  Sex: Female
  Weight: 92.4 kg

DRUGS (7)
  1. EPHEDRINE. [Concomitant]
     Active Substance: EPHEDRINE
  2. CEFAZOLIN 2 GRAM DUPLEX CONTAINER [Suspect]
     Active Substance: CEFAZOLIN SODIUM
     Indication: PROPHYLAXIS
     Route: 042
     Dates: start: 20170311, end: 20170311
  3. MIDAZOLAM [Concomitant]
     Active Substance: MIDAZOLAM HYDROCHLORIDE
  4. FENTANYL. [Concomitant]
     Active Substance: FENTANYL
  5. PREVIO [Concomitant]
  6. LIDOCAINE. [Concomitant]
     Active Substance: LIDOCAINE
  7. PROPOFOL. [Concomitant]
     Active Substance: PROPOFOL

REACTIONS (10)
  - Pruritus [None]
  - Tachypnoea [None]
  - Procedural hypotension [None]
  - Rash generalised [None]
  - Paraesthesia [None]
  - Hypersensitivity [None]
  - Epigastric discomfort [None]
  - Tachycardia [None]
  - Hypoxia [None]
  - Bronchospasm [None]

NARRATIVE: CASE EVENT DATE: 20170311
